FAERS Safety Report 21507916 (Version 1)
Quarter: 2022Q4

REPORT INFORMATION
  Report Type: Report from Study
  Country: CO (occurrence: CO)
  Receive Date: 20221026
  Receipt Date: 20221026
  Transmission Date: 20230113
  Serious: Yes (Other)
  Sender: FDA-Public Use
  Company Number: CO-ASTPRD-AER-2022-023097

PATIENT
  Age: 50 Year
  Sex: Female

DRUGS (1)
  1. TACROLIMUS [Suspect]
     Active Substance: TACROLIMUS
     Indication: Renal transplant
     Dosage: 10 MG, ONCE DAILY (5MG-1CAPSULE AND 1MG-5 CAPSULES)
     Route: 048
     Dates: start: 20220729

REACTIONS (2)
  - Secondary immunodeficiency [Unknown]
  - Infection [Unknown]

NARRATIVE: CASE EVENT DATE: 20220101
